FAERS Safety Report 8162411-0 (Version None)
Quarter: 2012Q1

REPORT INFORMATION
  Report Type: 
  Country: None (occurrence: None)
  Receive Date: 20120224
  Receipt Date: 20120220
  Transmission Date: 20120608
  Serious: Yes (Death, Other)
  Sender: FDA-Public Use
  Company Number: PHHY2011DK78380

PATIENT
  Sex: Female
  Weight: 61 kg

DRUGS (13)
  1. AMIODARONE HCL [Interacting]
     Indication: ATRIAL FIBRILLATION
     Dosage: 200 MG, QD
     Route: 048
     Dates: start: 20100612
  2. ATORVASTATIN CALCIUM [Concomitant]
     Indication: DEPRESSION
     Dates: start: 20100312
  3. PAMOL [Concomitant]
     Indication: ANGINA PECTORIS
     Dosage: UNK
  4. PRIMPERAN TAB [Interacting]
     Indication: SURGERY
     Dates: start: 20110414
  5. WARFARIN SODIUM [Concomitant]
     Indication: ATRIAL FIBRILLATION
     Dates: start: 20100312
  6. KODEIN [Concomitant]
     Indication: PAIN
     Dosage: UNK
     Dates: start: 20110414
  7. CIPROFLOXACIN [Suspect]
     Indication: URINARY TRACT INFECTION
     Dates: start: 20110414
  8. IMOCLONE [Concomitant]
     Dates: start: 20110413
  9. FEXOFENADINE HCL [Suspect]
     Indication: RHINITIS ALLERGIC
  10. PAMOL [Concomitant]
     Dates: start: 20100312
  11. PRIMPERAN TAB [Interacting]
     Indication: NAUSEA
     Dates: start: 20110315
  12. IBUPROFEN [Concomitant]
     Indication: PAIN
     Dosage: UNK
     Dates: start: 20110415
  13. IMOCLONE [Concomitant]
     Indication: INSOMNIA
     Dosage: UNK

REACTIONS (12)
  - DYSPNOEA [None]
  - VENTRICULAR TACHYARRHYTHMIA [None]
  - ELECTROCARDIOGRAM QT PROLONGED [None]
  - CHEST PAIN [None]
  - TOXICITY TO VARIOUS AGENTS [None]
  - DRUG LEVEL INCREASED [None]
  - MALAISE [None]
  - MYOCARDIAL FIBROSIS [None]
  - NAUSEA [None]
  - PULMONARY OEDEMA [None]
  - DRUG INTERACTION [None]
  - VOMITING [None]
